FAERS Safety Report 6291551-6 (Version None)
Quarter: 2009Q3

REPORT INFORMATION
  Report Type: 
  Country: None (occurrence: None)
  Receive Date: 20090730
  Receipt Date: 20090727
  Transmission Date: 20100115
  Serious: Yes (Life-Threatening, Hospitalization)
  Sender: FDA-Public Use
  Company Number: PHHY2009ES28356

PATIENT
  Age: 86 Year
  Sex: Male

DRUGS (11)
  1. MYFORTIC [Suspect]
     Indication: MYASTHENIA GRAVIS
     Dosage: 360 MG, Q12H
     Dates: start: 20090211
  2. LOSARTAN POTASSIUM [Concomitant]
     Dosage: 50 MG DAILY
  3. PREDNISONE TAB [Concomitant]
     Dosage: 20MG A DAY AND 40MG THE FOLLOWING DAY
  4. MESTINON [Concomitant]
     Dosage: 1 DF, Q8H
  5. UROTROL [Concomitant]
     Dosage: 4 MG DAILY
  6. OMEPRAZOL [Concomitant]
     Dosage: 20 MG DAILY
  7. CALCIUM-SANDOZ FORTE [Concomitant]
     Dosage: 2 DF, QD
  8. SERETIDE [Concomitant]
     Dosage: UNK
  9. LOBIVON [Concomitant]
     Dosage: 1/2 TABLET EVERY MORNING
  10. LUMIGAN [Concomitant]
     Dosage: 1 DROP DAILY IN EACH EYE
  11. MYCOPHENOLATE MOFETIL [Concomitant]

REACTIONS (2)
  - DEEP VEIN THROMBOSIS [None]
  - PULMONARY EMBOLISM [None]
